FAERS Safety Report 7625441-0 (Version None)
Quarter: 2011Q3

REPORT INFORMATION
  Report Type: 
  Country: None (occurrence: None)
  Receive Date: 20110721
  Receipt Date: 20110712
  Transmission Date: 20111222
  Serious: No
  Sender: FDA-Public Use
  Company Number: US-JNJFOC-20110610246

PATIENT
  Sex: Female
  Weight: 25.76 kg

DRUGS (4)
  1. INVEGA SUSTENNA [Suspect]
     Route: 030
     Dates: start: 20110531
  2. INVEGA SUSTENNA [Suspect]
     Route: 030
     Dates: start: 20110502
  3. INVEGA SUSTENNA [Suspect]
     Route: 030
     Dates: start: 20101004
  4. INVEGA SUSTENNA [Suspect]
     Indication: PSYCHOTIC DISORDER
     Route: 030
     Dates: start: 20110621

REACTIONS (3)
  - INJECTION SITE RASH [None]
  - INJECTION SITE REACTION [None]
  - MEDICATION ERROR [None]
